FAERS Safety Report 21396421 (Version 1)
Quarter: 2022Q3

REPORT INFORMATION
  Report Type: Spontaneous
  Country: US (occurrence: US)
  Receive Date: 20220930
  Receipt Date: 20220930
  Transmission Date: 20221027
  Serious: No
  Sender: FDA-Public Use
  Company Number: US-PFIZER INC-202201195234

PATIENT
  Age: 79 Year
  Weight: 63.492 kg

DRUGS (4)
  1. PAXLOVID [Suspect]
     Active Substance: NIRMATRELVIR\RITONAVIR
     Indication: COVID-19 treatment
     Dosage: UNK
     Dates: start: 20220921, end: 20220926
  2. LISINOPRIL [Concomitant]
     Active Substance: LISINOPRIL
     Indication: Hypertension
     Dosage: UNK
  3. HYDROCHLOROTHIAZIDE [Concomitant]
     Active Substance: HYDROCHLOROTHIAZIDE
     Indication: Hypertension
     Dosage: UNK
  4. ACYCLOVIR [Concomitant]
     Active Substance: ACYCLOVIR
     Indication: Eye disorder
     Dosage: UNK, 2X/DAY

REACTIONS (11)
  - Cough [Unknown]
  - Fatigue [Unknown]
  - Gastrointestinal disorder [Unknown]
  - Nausea [Unknown]
  - Decreased appetite [Unknown]
  - Abdominal distension [Unknown]
  - Malaise [Unknown]
  - Diarrhoea [Unknown]
  - Insomnia [Recovered/Resolved]
  - Formication [Unknown]
  - Weight decreased [Unknown]

NARRATIVE: CASE EVENT DATE: 20220901
